FAERS Safety Report 12289132 (Version 1)
Quarter: 2016Q2

REPORT INFORMATION
  Report Type: Spontaneous
  Country: US (occurrence: None)
  Receive Date: 20160420
  Receipt Date: 20160420
  Transmission Date: 20160815
  Serious: Yes (Death)
  Sender: FDA-Public Use
  Company Number: None

PATIENT
  Age: 75 Year
  Sex: Male

DRUGS (1)
  1. LIPITOR [Suspect]
     Active Substance: ATORVASTATIN CALCIUM
     Indication: BLOOD CHOLESTEROL INCREASED
     Dosage: 1 TABLET(S) ONCE A DAY TAKEN BY MOUTH
     Route: 048
     Dates: start: 20110101, end: 20160419

REACTIONS (6)
  - Muscle atrophy [None]
  - Abasia [None]
  - Grip strength decreased [None]
  - Fall [None]
  - Aphasia [None]
  - Dysphagia [None]

NARRATIVE: CASE EVENT DATE: 20160110
